FAERS Safety Report 5707283-6 (Version None)
Quarter: 2008Q2

REPORT INFORMATION
  Report Type: 
  Country: None (occurrence: None)
  Receive Date: 20080416
  Receipt Date: 20080407
  Transmission Date: 20081010
  Serious: Yes (Hospitalization, Other)
  Sender: FDA-Public Use
  Company Number: PHBS2007JP20922

PATIENT
  Age: 8 Year
  Sex: Female

DRUGS (4)
  1. GLEEVEC [Suspect]
     Indication: ACUTE LYMPHOCYTIC LEUKAEMIA
     Route: 048
     Dates: start: 20020601, end: 20061201
  2. ALLBFM90HR [Concomitant]
     Dosage: UNK, UNK
     Route: 065
     Dates: start: 20020601
  3. HEMATOPOETIC PROGENITOR CELLS HUMAN [Concomitant]
     Route: 065
     Dates: start: 20021001
  4. BLOOD TRANSFUSION, AUXILIARY PRODUCTS [Concomitant]
     Dosage: UNK, UNK
     Route: 042
     Dates: start: 20070101

REACTIONS (8)
  - BLOOD CREATINE PHOSPHOKINASE INCREASED [None]
  - BLOOD CREATINE PHOSPHOKINASE MB INCREASED [None]
  - BONE MARROW FAILURE [None]
  - ENTEROCOLITIS HAEMORRHAGIC [None]
  - GANGRENE [None]
  - HYPOPROTEINAEMIA [None]
  - PURPURA FULMINANS [None]
  - SEPSIS [None]
